FAERS Safety Report 8971484 (Version 1)
Quarter: 2012Q4

REPORT INFORMATION
  Report Type: 
  Country: BR (occurrence: BR)
  Receive Date: 20121218
  Receipt Date: 20121218
  Transmission Date: 20130627
  Serious: Yes (Other)
  Sender: FDA-Public Use
  Company Number: PHHY2012BR116119

PATIENT
  Sex: Female

DRUGS (2)
  1. RASILEZ HCT [Suspect]
     Indication: HYPERTENSION
  2. HORMONES NOS [Concomitant]
     Indication: MENOPAUSE

REACTIONS (2)
  - Vitamin D decreased [Recovering/Resolving]
  - Muscle spasms [Recovering/Resolving]
